FAERS Safety Report 10011366 (Version 1)
Quarter: 2014Q1

REPORT INFORMATION
  Report Type: Spontaneous
  Country: US (occurrence: US)
  Receive Date: 20140314
  Receipt Date: 20140314
  Transmission Date: 20141002
  Serious: Yes (Hospitalization)
  Sender: FDA-Public Use
  Company Number: US-UCBSA-114280

PATIENT
  Sex: Female

DRUGS (1)
  1. VIMPAT [Suspect]
     Indication: CONVULSION

REACTIONS (2)
  - Brain neoplasm [Unknown]
  - Convulsion [Unknown]
